FAERS Safety Report 12713046 (Version 1)
Quarter: 2016Q3

REPORT INFORMATION
  Report Type: Spontaneous
  Country: US (occurrence: US)
  Receive Date: 20160902
  Receipt Date: 20160902
  Transmission Date: 20161109
  Serious: Yes (Death)
  Sender: FDA-Public Use
  Company Number: US-HAEMONETICS CORP-1057018

PATIENT
  Age: 53 Year
  Sex: Male
  Weight: 650 kg

DRUGS (2)
  1. 0.9% SODIUM CHLORIDE INJECTION [Concomitant]
     Active Substance: SODIUM CHLORIDE
     Route: 042
     Dates: start: 20160803, end: 20160803
  2. HAEMONETICS ANTICOAGULANT SODIUM CITRATE [Suspect]
     Active Substance: TRISODIUM CITRATE DIHYDRATE
     Indication: ANTICOAGULANT THERAPY
     Route: 042
     Dates: start: 20160803, end: 20160803

REACTIONS (1)
  - Death [Fatal]

NARRATIVE: CASE EVENT DATE: 20160805
